FAERS Safety Report 5964918-0 (Version None)
Quarter: 2008Q4

REPORT INFORMATION
  Report Type: 
  Country: None (occurrence: None)
  Receive Date: 20081125
  Receipt Date: 20081112
  Transmission Date: 20090506
  Serious: Yes (Other)
  Sender: FDA-Public Use
  Company Number: PHHY2008DE28443

PATIENT
  Sex: Male
  Weight: 90 kg

DRUGS (2)
  1. EXFORGE [Suspect]
     Indication: ESSENTIAL HYPERTENSION
     Dosage: 160/10 MG, QD
     Dates: start: 20070709, end: 20080301
  2. HCT-GAMMA [Concomitant]
     Dosage: 25 MG, QD

REACTIONS (5)
  - DIZZINESS [None]
  - JOINT SWELLING [None]
  - OEDEMA MOUTH [None]
  - OEDEMA PERIPHERAL [None]
  - PAIN IN EXTREMITY [None]
